FAERS Safety Report 20145188 (Version 2)
Quarter: 2022Q1

REPORT INFORMATION
  Report Type: Spontaneous
  Country: JP (occurrence: JP)
  Receive Date: 20211203
  Receipt Date: 20220114
  Transmission Date: 20220423
  Serious: Yes (Death)
  Sender: FDA-Public Use
  Company Number: JP-PFIZER INC-202101676259

PATIENT
  Age: 11 Month
  Sex: Female
  Weight: 3.08 kg

DRUGS (1)
  1. REVATIO [Suspect]
     Active Substance: SILDENAFIL CITRATE
     Indication: Pulmonary hypertension
     Dosage: 0.5 MG, 3X/DAY
     Dates: start: 20180924, end: 20181015

REACTIONS (1)
  - Death [Fatal]

NARRATIVE: CASE EVENT DATE: 20190603
